FAERS Safety Report 7778774-1 (Version None)
Quarter: 2011Q3

REPORT INFORMATION
  Report Type: 
  Country: None (occurrence: None)
  Receive Date: 20110926
  Receipt Date: 20110914
  Transmission Date: 20111222
  Serious: Yes (Hospitalization)
  Sender: FDA-Public Use
  Company Number: JP-JNJFOC-20110609714

PATIENT
  Sex: Male

DRUGS (15)
  1. URINORM [Concomitant]
     Indication: HYPERURICAEMIA
     Route: 048
     Dates: end: 20110613
  2. ZOSYN [Suspect]
     Route: 042
     Dates: start: 20110530, end: 20110609
  3. RIKKUNSHI-TO [Suspect]
     Route: 048
     Dates: end: 20110613
  4. TULOBUTEROL [Concomitant]
     Indication: EMPHYSEMA
     Route: 062
     Dates: end: 20110613
  5. NORVASC [Concomitant]
     Indication: HYPERTENSION
     Route: 048
     Dates: end: 20110613
  6. ZOSYN [Suspect]
     Indication: PNEUMONIA
     Route: 042
     Dates: end: 20110613
  7. UNIPHYL [Concomitant]
     Indication: EMPHYSEMA
     Route: 048
     Dates: end: 20110613
  8. RIKKUNSHI-TO [Suspect]
     Indication: DECREASED APPETITE
     Route: 048
     Dates: start: 20110527, end: 20110609
  9. AMBROXOL HYDROCHLORIDE [Concomitant]
     Indication: PRODUCT USED FOR UNKNOWN INDICATION
     Route: 065
     Dates: end: 20110613
  10. LEVOFLOXACIN [Suspect]
     Indication: PNEUMONIA
     Route: 048
     Dates: start: 20110530, end: 20110609
  11. PILSICAINIDE HYDROCHLORIDE [Concomitant]
     Indication: SINUS ARRHYTHMIA
     Route: 048
  12. TALION [Concomitant]
     Indication: PRODUCT USED FOR UNKNOWN INDICATION
     Route: 065
     Dates: end: 20110613
  13. GLORIAMIN [Concomitant]
     Indication: PRODUCT USED FOR UNKNOWN INDICATION
     Route: 065
     Dates: end: 20110613
  14. TAMSULOSIN HCL [Concomitant]
     Indication: BENIGN PROSTATIC HYPERPLASIA
     Route: 048
     Dates: end: 20110613
  15. MIYA-BM [Concomitant]
     Indication: DYSPEPSIA
     Route: 048
     Dates: start: 20110527, end: 20110609

REACTIONS (1)
  - INTERSTITIAL LUNG DISEASE [None]
